FAERS Safety Report 12076981 (Version 1)
Quarter: 2016Q1

REPORT INFORMATION
  Report Type: Spontaneous
  Country: US (occurrence: US)
  Receive Date: 20160215
  Receipt Date: 20160215
  Transmission Date: 20160526
  Serious: Yes (Death)
  Sender: FDA-Public Use
  Company Number: US-JUBILANT CADISTA PHARMACEUTICALS-2016JUB00039

PATIENT
  Age: 63 Year
  Sex: Male

DRUGS (3)
  1. IPILIMUMAB [Suspect]
     Active Substance: IPILIMUMAB
     Indication: PROSTATE CANCER METASTATIC
     Route: 065
  2. MESALAMINE. [Concomitant]
     Active Substance: MESALAMINE
     Route: 065
  3. PREDNISONE. [Suspect]
     Active Substance: PREDNISONE
     Indication: ENTEROCOLITIS
     Route: 065

REACTIONS (5)
  - Pneumonia aspiration [Fatal]
  - Large intestine perforation [Fatal]
  - Peritonitis [Fatal]
  - Venous thrombosis [Fatal]
  - Retroperitoneal haematoma [Fatal]
